FAERS Safety Report 5798355-9 (Version None)
Quarter: 2008Q3

REPORT INFORMATION
  Report Type: 
  Country: None (occurrence: None)
  Receive Date: 20080702
  Receipt Date: 20080625
  Transmission Date: 20090109
  Serious: Yes (Death, Hospitalization, Other)
  Sender: FDA-Public Use
  Company Number: DE-JNJFOC-20080504182

PATIENT
  Age: 58 Year
  Sex: Male

DRUGS (8)
  1. REMICADE [Suspect]
     Dosage: 2ND DOSE
     Route: 042
  2. REMICADE [Suspect]
     Indication: CROHN'S DISEASE
     Dosage: 1ST DOSE
     Route: 042
  3. ADALIMUMAB [Suspect]
     Dosage: 4TH VISIT, 3RD DOSE
  4. ADALIMUMAB [Suspect]
     Dosage: 3RD VISIT, 2ND DOSE
  5. ADALIMUMAB [Suspect]
     Indication: INFLAMMATORY BOWEL DISEASE
  6. LERCANDIPIN [Concomitant]
  7. PIRETANIDE [Concomitant]
  8. DOXAZOSIN MESYLATE [Concomitant]

REACTIONS (4)
  - DEATH [None]
  - HEPATOSPLENIC T-CELL LYMPHOMA [None]
  - PANCYTOPENIA [None]
  - SPLENECTOMY [None]
